FAERS Safety Report 5650331-2 (Version None)
Quarter: 2008Q1

REPORT INFORMATION
  Report Type: 
  Country: None (occurrence: None)
  Receive Date: 20080305
  Receipt Date: 20080221
  Transmission Date: 20080703
  Serious: Yes (Other)
  Sender: FDA-Public Use
  Company Number: US-BAYER-200717304NA

PATIENT
  Age: 27 Year
  Sex: Female
  Weight: 77 kg

DRUGS (1)
  1. MIRENA [Suspect]
     Indication: CONTRACEPTION
     Route: 015
     Dates: start: 20071029, end: 20080130

REACTIONS (4)
  - ABDOMINAL PAIN [None]
  - ANXIETY [None]
  - QUALITY OF LIFE DECREASED [None]
  - UTERINE RUPTURE [None]
